FAERS Safety Report 7352287-3 (Version None)
Quarter: 2011Q1

REPORT INFORMATION
  Report Type: 
  Country: None (occurrence: None)
  Receive Date: 20110309
  Receipt Date: 20110309
  Transmission Date: 20110831
  Serious: Yes (Life-Threatening)
  Sender: FDA-Public Use
  Company Number: None

PATIENT
  Age: 51 Year
  Weight: 88.905 kg

DRUGS (1)
  1. CIPROFLOXACIN [Suspect]
     Indication: DIVERTICULITIS
     Dosage: PO
     Route: 048
     Dates: start: 20100310, end: 20100314

REACTIONS (7)
  - HYPOAESTHESIA [None]
  - HEART RATE INCREASED [None]
  - NERVOUS SYSTEM DISORDER [None]
  - PARAESTHESIA [None]
  - BURNING SENSATION [None]
  - BLOOD PRESSURE INCREASED [None]
  - ASTHENIA [None]
